FAERS Safety Report 17654229 (Version 1)
Quarter: 2020Q2

REPORT INFORMATION
  Report Type: Spontaneous
  Country: US (occurrence: US)
  Receive Date: 20200410
  Receipt Date: 20200410
  Transmission Date: 20200713
  Serious: Yes (Hospitalization)
  Sender: FDA-Public Use
  Company Number: US-GLOBAL BLOOD THERAPEUTICS INC-US-GBT-20-00525

PATIENT
  Age: 18 Year

DRUGS (1)
  1. OXBRYTA [Suspect]
     Active Substance: VOXELOTOR
     Indication: SICKLE CELL ANAEMIA
     Route: 048

REACTIONS (4)
  - Nausea [Unknown]
  - Headache [Unknown]
  - Sickle cell anaemia with crisis [Unknown]
  - Vomiting [Unknown]
